FAERS Safety Report 8841011 (Version 3)
Quarter: 2015Q3

REPORT INFORMATION
  Report Type: Report from Study
  Country: US (occurrence: US)
  Receive Date: 20121015
  Receipt Date: 20150821
  Transmission Date: 20151125
  Serious: Yes (Other)
  Sender: FDA-Public Use
  Company Number: US-ROCHE-1140485

PATIENT
  Age: 13 Year
  Sex: Female
  Weight: 51.76 kg

DRUGS (5)
  1. PROTROPIN [Suspect]
     Active Substance: SOMATREM
     Indication: GROWTH HORMONE DEFICIENCY
     Route: 030
     Dates: start: 1989
  2. TEGRETOL [Concomitant]
     Active Substance: CARBAMAZEPINE
     Route: 065
  3. PROTROPIN [Suspect]
     Active Substance: SOMATREM
     Indication: PRADER-WILLI SYNDROME
     Route: 030
  4. DEPAKOTE [Concomitant]
     Active Substance: DIVALPROEX SODIUM
  5. PROTROPIN [Suspect]
     Active Substance: SOMATREM
     Indication: DWARFISM

REACTIONS (5)
  - Glaucoma [Unknown]
  - Seizure [Unknown]
  - Blood insulin increased [Unknown]
  - Rash [Recovered/Resolved]
  - Blood cholesterol increased [Unknown]

NARRATIVE: CASE EVENT DATE: 200001
